FAERS Safety Report 25013035 (Version 1)
Quarter: 2025Q1

REPORT INFORMATION
  Report Type: Spontaneous
  Country: JP (occurrence: JP)
  Receive Date: 20250226
  Receipt Date: 20250226
  Transmission Date: 20250409
  Serious: Yes (Death, Other)
  Sender: AMGEN
  Company Number: JP-AMGEN-JPNSP2025035079

PATIENT

DRUGS (2)
  1. BLINCYTO [Suspect]
     Active Substance: BLINATUMOMAB
     Indication: B precursor type acute leukaemia
     Route: 040
  2. BLINCYTO [Suspect]
     Active Substance: BLINATUMOMAB
     Route: 040

REACTIONS (11)
  - B precursor type acute leukaemia [Fatal]
  - Death [Fatal]
  - Optic neuritis [Unknown]
  - Encephalopathy [Unknown]
  - Liver disorder [Unknown]
  - Full blood count decreased [Unknown]
  - Therapy interrupted [Unknown]
  - Blood pressure decreased [Unknown]
  - Rash [Unknown]
  - Pyrexia [Unknown]
  - Therapeutic product effect incomplete [Unknown]
